FAERS Safety Report 15459438 (Version 2)
Quarter: 2019Q1

REPORT INFORMATION
  Report Type: Spontaneous
  Country: JP (occurrence: JP)
  Receive Date: 20181003
  Receipt Date: 20190327
  Transmission Date: 20190417
  Serious: Yes (Other)
  Sender: FDA-Public Use
  Company Number: JP-PFIZER INC-2018396846

PATIENT
  Age: 43 Year
  Sex: Female

DRUGS (2)
  1. CAMPTO [Suspect]
     Active Substance: IRINOTECAN
     Indication: SMALL INTESTINE CARCINOMA
     Dosage: UNK UNK, 1X/DAY
     Route: 041
  2. TS-1 [Concomitant]
     Active Substance: GIMERACIL\OTERACIL\TEGAFUR
     Dosage: UNK UNK, DAILY

REACTIONS (1)
  - Intestinal obstruction [Recovering/Resolving]
